APPROVED DRUG PRODUCT: TENORMIN
Active Ingredient: ATENOLOL
Strength: 0.5MG/ML **Federal Register determination that product was not discontinued or withdrawn for safety or effectiveness reasons**
Dosage Form/Route: INJECTABLE;INJECTION
Application: N019058 | Product #001
Applicant: ASTRAZENECA PHARMACEUTICALS LP
Approved: Sep 13, 1989 | RLD: Yes | RS: No | Type: DISCN